FAERS Safety Report 4664648-1 (Version None)
Quarter: 2005Q2

REPORT INFORMATION
  Report Type: 
  Country: None (occurrence: None)
  Receive Date: 20050518
  Receipt Date: 20050512
  Transmission Date: 20051028
  Serious: Yes (Other)
  Sender: FDA-Public Use
  Company Number: PHBS2005NZ06735

PATIENT
  Age: 17 Year
  Sex: Female

DRUGS (4)
  1. CLOZARIL [Suspect]
     Indication: PSYCHOTIC DISORDER
     Dosage: 125 MG, BID
     Route: 048
     Dates: start: 20050428
  2. OLANZAPINE [Concomitant]
     Dosage: 5 MG, QHS
     Route: 065
  3. FLIXOTIDE [Concomitant]
     Route: 065
  4. AALBUTAMOL [Concomitant]
     Route: 065

REACTIONS (4)
  - BLOOD INSULIN INCREASED [None]
  - HYPERTENSION [None]
  - INSULIN RESISTANCE [None]
  - OVARIAN DISORDER [None]
